FAERS Safety Report 10274007 (Version 1)
Quarter: 2014Q1

REPORT INFORMATION
  Report Type: Report from Study
  Country: US (occurrence: None)
  Receive Date: 20140306
  Receipt Date: 20140306
  Transmission Date: 20141002
  Serious: Yes (Hospitalization)
  Sender: FDA-Public Use
  Company Number: 163-21880-13092915

PATIENT
  Age: 56 Year
  Sex: Male
  Weight: 89 kg

DRUGS (19)
  1. REVLIMID (LENALIDOMIDE) (CAPSULES) [Suspect]
     Indication: PLASMA CELL MYELOMA RECURRENT
     Dosage: 25 MG , 21 IN 21 D, PO
     Route: 048
     Dates: start: 20130909, end: 20130915
  2. MLN9708/PLACEBO [Concomitant]
     Indication: PLASMA CELL MYELOMA RECURRENT
     Dosage: 4 MG, 3 IN 28 D, PO
     Route: 048
     Dates: start: 20130909, end: 20130909
  3. DEXAMETHASONE (DEXAMETHASONE) (UNKNOWN) [Suspect]
     Indication: PLASMA CELL MYELOMA RECURRENT
     Dosage: 40 MG, 4 IN 28 D, PO
     Route: 048
     Dates: start: 20130909, end: 20130909
  4. IBUPROFEN [Concomitant]
  5. ATENOLOL [Concomitant]
  6. CYANOCOBALAMIN [Concomitant]
  7. ZOLEDRONIC ACID [Concomitant]
  8. FLUID (BARIUM SULFATE) [Concomitant]
  9. RED BLOOD CELLS (RED BLOOD CELLS) [Concomitant]
  10. CALCIUM GLUCONATE [Concomitant]
  11. MAGNESIUM SULFATE [Concomitant]
  12. KAYEXALATE (SODIUM POLYSTYRENE SULFONATE) [Concomitant]
  13. SEVELAMER [Concomitant]
  14. VITAMIN B 12 [Concomitant]
  15. DRISDOL (ERGOCALCIFEROL) [Concomitant]
  16. TAMSULOSIN [Concomitant]
  17. VITAMIN D (ERGOCALCIFEROL) [Concomitant]
  18. TYLENOL NO 3 (PANADEIME CO) [Concomitant]
  19. DOCUSATE SENNA [Concomitant]

REACTIONS (1)
  - Renal failure acute [None]
